FAERS Safety Report 9063221 (Version 1)
Quarter: 2013Q1

REPORT INFORMATION
  Report Type: Spontaneous
  Country: CA (occurrence: CA)
  Receive Date: 20130213
  Receipt Date: 20130213
  Transmission Date: 20140127
  Serious: Yes (Other)
  Sender: FDA-Public Use
  Company Number: CA-GLAXOSMITHKLINE-A1010861A

PATIENT
  Age: 72 Year
  Sex: Male

DRUGS (1)
  1. ADVAIR [Suspect]
     Indication: CHRONIC OBSTRUCTIVE PULMONARY DISEASE
     Dosage: 1PUFF TWICE PER DAY
     Route: 055
     Dates: start: 201302

REACTIONS (6)
  - Palpitations [Unknown]
  - Dizziness [Unknown]
  - Increased upper airway secretion [Unknown]
  - Candida infection [Unknown]
  - Adverse drug reaction [Unknown]
  - Product quality issue [Unknown]
